FAERS Safety Report 14152524 (Version 3)
Quarter: 2017Q4

REPORT INFORMATION
  Report Type: Spontaneous
  Country: US (occurrence: US)
  Receive Date: 20171102
  Receipt Date: 20171129
  Transmission Date: 20180321
  Serious: Yes (Disabling)
  Sender: FDA-Public Use
  Company Number: US-SAOL THERAPEUTICS-2017SAO01672

PATIENT
  Age: 45 Year
  Sex: Male
  Weight: 117.91 kg

DRUGS (18)
  1. CLONIDINE. [Concomitant]
     Active Substance: CLONIDINE
  2. METOPROLOL. [Concomitant]
     Active Substance: METOPROLOL
  3. LORATADINE. [Concomitant]
     Active Substance: LORATADINE
  4. ATORVASTATIN [Concomitant]
     Active Substance: ATORVASTATIN
  5. ETODOLAC. [Concomitant]
     Active Substance: ETODOLAC
  6. BACLOFEN. [Suspect]
     Active Substance: BACLOFEN
  7. GABLOFEN [Suspect]
     Active Substance: BACLOFEN
     Dosage: UNK ?G, \DAY
     Route: 037
     Dates: start: 20150330
  8. GABLOFEN [Suspect]
     Active Substance: BACLOFEN
     Dosage: 96 ?G, \DAY
     Route: 037
     Dates: start: 20170215
  9. AMLODIPINE [Concomitant]
     Active Substance: AMLODIPINE BESYLATE
  10. FLUOXETINE [Concomitant]
     Active Substance: FLUOXETINE HYDROCHLORIDE
  11. GABAPENTIN. [Concomitant]
     Active Substance: GABAPENTIN
  12. ASPIRIN. [Concomitant]
     Active Substance: ASPIRIN
  13. BACLOFEN. [Concomitant]
     Active Substance: BACLOFEN
  14. LIDOCAINE. [Concomitant]
     Active Substance: LIDOCAINE
     Route: 061
  15. HYDROCHLOROTHIAZIDE. [Concomitant]
     Active Substance: HYDROCHLOROTHIAZIDE
  16. MELATONIN [Concomitant]
     Active Substance: MELATONIN
  17. MODAFINIL. [Concomitant]
     Active Substance: MODAFINIL
  18. VALIUM [Concomitant]
     Active Substance: DIAZEPAM

REACTIONS (4)
  - Device failure [Unknown]
  - Off label use [Unknown]
  - Performance status decreased [Unknown]
  - Pain [Unknown]

NARRATIVE: CASE EVENT DATE: 201303
